FAERS Safety Report 11332357 (Version 1)
Quarter: 2015Q3

REPORT INFORMATION
  Report Type: Spontaneous
  Country: US (occurrence: US)
  Receive Date: 20150803
  Receipt Date: 20150803
  Transmission Date: 20151125
  Serious: No
  Sender: FDA-Public Use
  Company Number: US-ELI_LILLY_AND_COMPANY-US200808001499

PATIENT
  Age: 36 Year
  Sex: Female

DRUGS (2)
  1. ZYPREXA [Suspect]
     Active Substance: OLANZAPINE
     Indication: POSTPARTUM DEPRESSION
     Dosage: 2.5 MG, DAILY (1/D)
     Dates: start: 20080516
  2. PAXIL [Concomitant]
     Active Substance: PAROXETINE HYDROCHLORIDE
     Dosage: UNK, UNK
     Dates: start: 20080516, end: 20080811

REACTIONS (3)
  - Abnormal dreams [Not Recovered/Not Resolved]
  - Flashback [Not Recovered/Not Resolved]
  - Nightmare [Not Recovered/Not Resolved]

NARRATIVE: CASE EVENT DATE: 20080516
